FAERS Safety Report 6805282-4 (Version None)
Quarter: 2010Q2

REPORT INFORMATION
  Report Type: 
  Country: None (occurrence: None)
  Receive Date: 20100628
  Receipt Date: 20071003
  Transmission Date: 20101027
  Serious: No
  Sender: FDA-Public Use
  Company Number: US-PFIZER INC-2007084081

PATIENT
  Age: 43 Year
  Sex: Female

DRUGS (3)
  1. GEODON [Suspect]
     Indication: BIPOLAR DISORDER
     Dates: start: 20060131, end: 20070622
  2. ANTIDEPRESSANTS [Concomitant]
     Indication: DEPRESSION
     Route: 048
  3. OTHER HYPNOTICS AND SEDATIVES [Concomitant]
     Indication: INSOMNIA
     Route: 048

REACTIONS (1)
  - DRUG SCREEN POSITIVE [None]
